FAERS Safety Report 10568986 (Version 1)
Quarter: 2014Q4

REPORT INFORMATION
  Report Type: Spontaneous
  Country: GB (occurrence: GB)
  Receive Date: 20141106
  Receipt Date: 20141106
  Transmission Date: 20150529
  Serious: Yes (Other)
  Sender: FDA-Public Use
  Company Number: GB-GILEAD-2014-0121184

PATIENT
  Age: 24 Year
  Sex: Male
  Weight: 58.5 kg

DRUGS (3)
  1. COTRIMOXAZOLE [Concomitant]
     Active Substance: SULFAMETHOXAZOLE\TRIMETHOPRIM
     Route: 048
     Dates: start: 20080317
  2. ATRIPLA [Suspect]
     Active Substance: EFAVIRENZ\EMTRICITABINE\TENOFOVIR DISOPROXIL FUMARATE
     Indication: HIV INFECTION
     Route: 048
     Dates: start: 20080908
  3. CALCIUM W/VITAMIN D NOS [Concomitant]
     Active Substance: CALCIUM\VITAMIN D
     Route: 048
     Dates: start: 200903

REACTIONS (6)
  - Dysphoria [Unknown]
  - Panic attack [Unknown]
  - Headache [Unknown]
  - Dissociation [Unknown]
  - Electrocardiogram PR shortened [Unknown]
  - Chest pain [Unknown]

NARRATIVE: CASE EVENT DATE: 20090702
